FAERS Safety Report 7334135-0 (Version None)
Quarter: 2011Q1

REPORT INFORMATION
  Report Type: 
  Country: None (occurrence: None)
  Receive Date: 20110307
  Receipt Date: 20110222
  Transmission Date: 20110831
  Serious: Yes (Hospitalization, Other)
  Sender: FDA-Public Use
  Company Number: US-CELGENEUS-163-21880-10121696

PATIENT
  Sex: Male

DRUGS (7)
  1. COUMADIN [Concomitant]
     Indication: ATRIAL FIBRILLATION
     Dosage: 5 MILLIGRAM
     Route: 065
  2. LASIX [Concomitant]
     Dosage: 20 MILLIGRAM
     Route: 065
  3. METOPROLOL [Concomitant]
     Dosage: 100 MILLIGRAM
     Route: 065
  4. PIPERACILLIN [Concomitant]
     Route: 065
  5. ZOSYN [Concomitant]
     Route: 051
  6. REVLIMID [Suspect]
     Dosage: 25 MILLIGRAM
     Route: 048
     Dates: start: 20101202, end: 20100101
  7. DIGOXIN [Concomitant]
     Dosage: .25 MILLIGRAM
     Route: 065

REACTIONS (7)
  - SEPSIS [None]
  - HYPONATRAEMIA [None]
  - ANAEMIA [None]
  - ENCEPHALOPATHY [None]
  - DELIRIUM [None]
  - STAPHYLOCOCCAL INFECTION [None]
  - CONFUSIONAL STATE [None]
